FAERS Safety Report 22351727 (Version 7)
Quarter: 2024Q2

REPORT INFORMATION
  Report Type: Spontaneous
  Country: CA (occurrence: CA)
  Receive Date: 20230522
  Receipt Date: 20240410
  Transmission Date: 20240716
  Serious: Yes (Other)
  Sender: FDA-Public Use
  Company Number: CA-PFIZER INC-PV202300088363

PATIENT
  Age: 84 Year
  Sex: Male

DRUGS (1)
  1. BOSULIF [Suspect]
     Active Substance: BOSUTINIB MONOHYDRATE
     Indication: Chronic myeloid leukaemia
     Dosage: 200 MG, DAILY
     Dates: start: 20211130

REACTIONS (3)
  - Myocardial infarction [Unknown]
  - Internal haemorrhage [Unknown]
  - Cytopenia [Unknown]

NARRATIVE: CASE EVENT DATE: 20230501
